FAERS Safety Report 23701017 (Version 1)
Quarter: 2024Q2

REPORT INFORMATION
  Report Type: Spontaneous
  Country: JP (occurrence: JP)
  Receive Date: 20240403
  Receipt Date: 20240403
  Transmission Date: 20240715
  Serious: Yes (Other)
  Sender: FDA-Public Use
  Company Number: JP-SUNOVION-2024SMP004191

PATIENT

DRUGS (15)
  1. LATUDA [Suspect]
     Active Substance: LURASIDONE HYDROCHLORIDE
     Indication: Schizophrenia
     Dosage: 40 MG, QD
     Route: 048
  2. LATUDA [Suspect]
     Active Substance: LURASIDONE HYDROCHLORIDE
     Dosage: 20 MG, QD
     Route: 048
  3. LATUDA [Suspect]
     Active Substance: LURASIDONE HYDROCHLORIDE
     Dosage: 20 MG, QD
     Route: 048
  4. LATUDA [Suspect]
     Active Substance: LURASIDONE HYDROCHLORIDE
     Dosage: 20 MG, QD
     Route: 048
  5. BLONANSERIN [Suspect]
     Active Substance: BLONANSERIN
     Indication: Schizophrenia
     Dosage: 24 MG, QD
     Route: 048
  6. BLONANSERIN [Suspect]
     Active Substance: BLONANSERIN
     Dosage: 8 MG, QD
     Route: 048
  7. BLONANSERIN [Suspect]
     Active Substance: BLONANSERIN
     Dosage: 24 MG, QD
     Route: 048
  8. BLONANSERIN [Suspect]
     Active Substance: BLONANSERIN
     Dosage: 8 MG, QD
     Route: 048
  9. BLONANSERIN [Suspect]
     Active Substance: BLONANSERIN
     Dosage: 24 MG, QD
     Route: 048
  10. HALOPERIDOL [Suspect]
     Active Substance: HALOPERIDOL
     Indication: Schizophrenia
     Dosage: 10 MG, QD
     Route: 041
  11. VALPROATE SODIUM [Suspect]
     Active Substance: VALPROATE SODIUM
     Indication: Product used for unknown indication
     Dosage: 1200 MG, QD
     Route: 048
  12. RISPERIDONE [Suspect]
     Active Substance: RISPERIDONE
     Indication: Schizophrenia
     Dosage: 12 MG, QD
     Route: 048
  13. RISPERIDONE [Suspect]
     Active Substance: RISPERIDONE
     Dosage: 4 MG, QD
     Route: 048
  14. RISPERIDONE [Suspect]
     Active Substance: RISPERIDONE
     Dosage: 4 MG, QD
     Route: 048
  15. LORAZEPAM [Concomitant]
     Active Substance: LORAZEPAM
     Dosage: 1.5 MG, QD
     Route: 048

REACTIONS (6)
  - Renal impairment [Unknown]
  - Sedation complication [Recovering/Resolving]
  - Muscle rigidity [Unknown]
  - Prescribed underdose [Unknown]
  - Prescribed underdose [Unknown]
  - Prescribed underdose [Unknown]
